FAERS Safety Report 20520622 (Version 2)
Quarter: 2022Q1

REPORT INFORMATION
  Report Type: Spontaneous
  Country: GR (occurrence: GR)
  Receive Date: 20220225
  Receipt Date: 20220228
  Transmission Date: 20220424
  Serious: Yes (Other)
  Sender: FDA-Public Use
  Company Number: None

PATIENT
  Age: 69 Year
  Sex: Male
  Weight: 80 kg

DRUGS (8)
  1. OLUMIANT [Suspect]
     Active Substance: BARICITINIB
     Indication: COVID-19 treatment
     Dosage: 4 MG, DAILY
     Route: 065
  2. ENOXAPARIN SODIUM [Concomitant]
     Active Substance: ENOXAPARIN SODIUM
     Indication: Thrombosis prophylaxis
     Dosage: 0.6, DAILY
     Route: 042
     Dates: start: 20211014, end: 20211014
  3. LOSEC [Concomitant]
     Active Substance: OMEPRAZOLE
     Indication: Gastrooesophageal reflux prophylaxis
     Dosage: 40 OCEN, DAILY
     Route: 042
  4. VEKLURY [Concomitant]
     Active Substance: REMDESIVIR
     Indication: COVID-19 treatment
     Dosage: 200 MG, LOADINNG DOSE
     Route: 042
     Dates: start: 20211014
  5. VEKLURY [Concomitant]
     Active Substance: REMDESIVIR
     Dosage: 200 MG, LOADINNG DOSE
     Route: 042
     Dates: end: 20211018
  6. DEXAMETHASONE [Concomitant]
     Active Substance: DEXAMETHASONE
     Indication: COVID-19 treatment
     Dosage: 6 MG PER DAY
     Route: 042
     Dates: start: 20211014
  7. CEFTAROLINE FOSAMIL [Concomitant]
     Active Substance: CEFTAROLINE FOSAMIL
     Indication: Bacterial infection
     Dosage: 600 MG TWICE A DAY
     Route: 042
     Dates: start: 20211014, end: 20211020
  8. CEFTAROLINE FOSAMIL [Concomitant]
     Active Substance: CEFTAROLINE FOSAMIL
     Indication: COVID-19 treatment

REACTIONS (3)
  - Superficial vein thrombosis [Unknown]
  - Pulmonary embolism [Not Recovered/Not Resolved]
  - Off label use [Unknown]

NARRATIVE: CASE EVENT DATE: 20211017
